FAERS Safety Report 16119212 (Version 1)
Quarter: 2019Q1

REPORT INFORMATION
  Report Type: Spontaneous
  Country: US (occurrence: US)
  Receive Date: 20190326
  Receipt Date: 20190326
  Transmission Date: 20190418
  Serious: Yes (Hospitalization)
  Sender: FDA-Public Use
  Company Number: US-OTSUKA-2019_007947

PATIENT
  Age: 58 Year
  Sex: Female

DRUGS (4)
  1. ABILIFY [Suspect]
     Active Substance: ARIPIPRAZOLE
     Dosage: UNK
     Route: 048
  2. ABILIFY [Suspect]
     Active Substance: ARIPIPRAZOLE
     Indication: PRODUCT USED FOR UNKNOWN INDICATION
     Dosage: UNK, QD (HIGH DOSE)
     Route: 048
  3. GEODON [Suspect]
     Active Substance: ZIPRASIDONE HYDROCHLORIDE\ZIPRASIDONE MESYLATE
     Indication: PRODUCT USED FOR UNKNOWN INDICATION
     Dosage: UNK
     Route: 065
  4. INVEGA SUSTENNA [Suspect]
     Active Substance: PALIPERIDONE PALMITATE
     Indication: PRODUCT USED FOR UNKNOWN INDICATION
     Dosage: UNK
     Route: 065

REACTIONS (11)
  - Aggression [Recovered/Resolved]
  - Hallucination, visual [Recovered/Resolved]
  - Crying [Recovered/Resolved]
  - Libido increased [Recovered/Resolved]
  - Depression [Recovered/Resolved]
  - Screaming [Recovered/Resolved]
  - Fatigue [Not Recovered/Not Resolved]
  - Nervous system disorder [Recovered/Resolved]
  - Nervous system injury [Recovering/Resolving]
  - Anorgasmia [Recovering/Resolving]
  - Refusal of treatment by patient [Unknown]

NARRATIVE: CASE EVENT DATE: 201902
